FAERS Safety Report 4986139-0 (Version None)
Quarter: 2006Q2

REPORT INFORMATION
  Report Type: 
  Country: None (occurrence: None)
  Receive Date: 20060428
  Receipt Date: 20060405
  Transmission Date: 20061013
  Serious: Yes (Hospitalization)
  Sender: FDA-Public Use
  Company Number: US-MERCK-0604USA00702

PATIENT
  Age: 69 Year
  Sex: Female
  Weight: 80 kg

DRUGS (10)
  1. VIOXX [Suspect]
     Indication: ARTHRITIS
     Route: 048
     Dates: start: 20010501, end: 20020901
  2. AVANDIA [Concomitant]
     Route: 065
  3. SYNTHROID [Concomitant]
     Route: 065
  4. ALTACE [Concomitant]
     Route: 065
  5. LOPRESSOR [Concomitant]
     Route: 065
  6. AGGRENOX [Concomitant]
     Route: 065
  7. SULAR [Concomitant]
     Route: 065
  8. NEURONTIN [Concomitant]
     Route: 065
  9. FAMOTIDINE [Concomitant]
     Route: 065
  10. [THERAPY UNSPECIFIED] [Concomitant]
     Route: 065

REACTIONS (2)
  - CEREBROVASCULAR ACCIDENT [None]
  - MYOCARDIAL INFARCTION [None]
